FAERS Safety Report 6834758-9 (Version None)
Quarter: 2010Q3

REPORT INFORMATION
  Report Type: 
  Country: None (occurrence: None)
  Receive Date: 20100712
  Receipt Date: 20070521
  Transmission Date: 20110219
  Serious: No
  Sender: FDA-Public Use
  Company Number: US-PFIZER INC-2007029395

PATIENT
  Sex: Female

DRUGS (1)
  1. VARENICLINE [Suspect]
     Indication: TOBACCO ABUSE

REACTIONS (1)
  - RASH [None]
